FAERS Safety Report 5257723-4 (Version None)
Quarter: 2007Q1

REPORT INFORMATION
  Report Type: 
  Country: None (occurrence: None)
  Receive Date: 20070307
  Receipt Date: 20070228
  Transmission Date: 20070707
  Serious: Yes (Death, Hospitalization)
  Sender: FDA-Public Use
  Company Number: US-JNJFOC-20070206467

PATIENT
  Age: 74 Year
  Sex: Female

DRUGS (6)
  1. DURAGESIC-100 [Suspect]
     Dosage: 8X 12.5 UG/HR PATCHES
     Route: 062
  2. DURAGESIC-100 [Suspect]
     Indication: PAIN
     Route: 062
  3. COMPAZINE [Concomitant]
     Route: 065
  4. ROXINAL [Concomitant]
     Route: 065
  5. XOPENEX [Concomitant]
     Route: 065
  6. PULMICORT [Concomitant]
     Route: 065

REACTIONS (3)
  - DEATH [None]
  - DRUG PRESCRIBING ERROR [None]
  - PAIN [None]
